FAERS Safety Report 9314611 (Version 1)
Quarter: 2013Q2

REPORT INFORMATION
  Report Type: Spontaneous
  Country: BR (occurrence: BR)
  Receive Date: 20130529
  Receipt Date: 20130529
  Transmission Date: 20140414
  Serious: Yes (Other)
  Sender: FDA-Public Use
  Company Number: BR-ASTRAZENECA-2013SE36437

PATIENT
  Age: 661 Month
  Sex: Female
  Weight: 94 kg

DRUGS (3)
  1. ATACAND [Suspect]
     Indication: HYPERTENSION
     Dosage: UNKNOWN DOSE TWO TIMES A DAY
     Route: 048
  2. METFORMIN [Concomitant]
     Indication: DIABETES MELLITUS
     Dosage: UNKNOWN DOSE DAILY
  3. DIUREMIDA [Concomitant]
     Indication: HYPERTENSION

REACTIONS (2)
  - Hypertension [Recovered/Resolved]
  - Drug ineffective [Unknown]
